FAERS Safety Report 7490973-5 (Version None)
Quarter: 2011Q2

REPORT INFORMATION
  Report Type: 
  Country: None (occurrence: None)
  Receive Date: 20110519
  Receipt Date: 20110505
  Transmission Date: 20111010
  Serious: Yes (Other)
  Sender: FDA-Public Use
  Company Number: US-ACTELION-A-NJ2011-47568

PATIENT

DRUGS (9)
  1. NORVASC [Concomitant]
  2. PROTONIX [Concomitant]
  3. WARFARIN SODIUM [Concomitant]
  4. KEPPRA [Concomitant]
  5. RENAGEL [Concomitant]
  6. NEPHRO-VITE RX [Concomitant]
  7. TRACLEER [Suspect]
     Indication: PULMONARY ARTERIAL HYPERTENSION
     Dosage: 62.5 MG, UNK
     Route: 048
     Dates: start: 20101115
  8. PROAIR HFA [Concomitant]
  9. PREDNISONE [Concomitant]

REACTIONS (1)
  - CONVULSION [None]
